FAERS Safety Report 5851901-9 (Version None)
Quarter: 2008Q3

REPORT INFORMATION
  Report Type: 
  Country: None (occurrence: None)
  Receive Date: 20080820
  Receipt Date: 20080818
  Transmission Date: 20090109
  Serious: Yes (Disabling)
  Sender: FDA-Public Use
  Company Number: GB-PFIZER INC-2004115845

PATIENT
  Age: 10 Year
  Sex: Male
  Weight: 34.5 kg

DRUGS (3)
  1. LUSTRAL [Suspect]
     Indication: OBSESSIVE-COMPULSIVE DISORDER
     Route: 048
  2. ANTIHISTAMINES [Concomitant]
     Route: 048
  3. MULTI-VITAMINS [Concomitant]

REACTIONS (1)
  - ENURESIS [None]
